FAERS Safety Report 25871513 (Version 2)
Quarter: 2025Q4

REPORT INFORMATION
  Report Type: Spontaneous
  Country: GB (occurrence: GB)
  Receive Date: 20251001
  Receipt Date: 20251014
  Transmission Date: 20260118
  Serious: Yes (Other)
  Sender: ELI LILLY AND COMPANY
  Company Number: GB-ELI_LILLY_AND_COMPANY-GB202509022232

PATIENT
  Age: 48 Year
  Sex: Female

DRUGS (9)
  1. ABEMACICLIB [Suspect]
     Active Substance: ABEMACICLIB
     Indication: Breast cancer stage III
     Dosage: 150 MG, BID
     Route: 048
     Dates: start: 20240829
  2. ABEMACICLIB [Suspect]
     Active Substance: ABEMACICLIB
     Dosage: 100 MG, BID
     Route: 048
     Dates: start: 20240925, end: 20241209
  3. ABEMACICLIB [Suspect]
     Active Substance: ABEMACICLIB
     Dosage: 50 MG, BID
     Route: 048
     Dates: start: 20250121
  4. TAMOXIFEN [Concomitant]
     Active Substance: TAMOXIFEN
     Indication: Breast cancer stage III
     Dosage: 20 MG, DAILY
     Route: 065
     Dates: start: 202404
  5. ZOLEDRONIC ACID [Concomitant]
     Active Substance: ZOLEDRONIC ACID
     Indication: Breast cancer stage III
     Dosage: UNK, UNKNOWN
     Route: 065
  6. LEVOTHYROXINE [Concomitant]
     Active Substance: LEVOTHYROXINE
     Indication: Hypothyroidism
     Dosage: UNK, UNKNOWN
     Route: 065
  7. LANSOPRAZOLE [Concomitant]
     Active Substance: LANSOPRAZOLE
     Indication: Gastrooesophageal reflux disease
     Dosage: 15 MG, EACH MORNING
     Route: 065
  8. ACETAMINOPHEN [Concomitant]
     Active Substance: ACETAMINOPHEN
     Indication: Product used for unknown indication
     Dosage: 500 MG, EVERY 4-6 HRS
     Route: 065
  9. CANESTEN COMBI [Concomitant]
     Indication: Candida infection
     Dosage: 500 MG, PRN
     Route: 061

REACTIONS (1)
  - Epiploic appendagitis [Recovered/Resolved]

NARRATIVE: CASE EVENT DATE: 20241201
